FAERS Safety Report 11341959 (Version 1)
Quarter: 2015Q3

REPORT INFORMATION
  Report Type: Spontaneous
  Country: US (occurrence: US)
  Receive Date: 20150805
  Receipt Date: 20150805
  Transmission Date: 20151125
  Serious: No
  Sender: FDA-Public Use
  Company Number: PHEH2015US014659

PATIENT
  Sex: Male

DRUGS (3)
  1. CERTA [Suspect]
     Active Substance: CERIVASTATIN
     Indication: PRODUCT USED FOR UNKNOWN INDICATION
     Dosage: 36 V, UNK
     Route: 065
  2. FOCALIN [Suspect]
     Active Substance: DEXMETHYLPHENIDATE HYDROCHLORIDE
     Indication: PRODUCT USED FOR UNKNOWN INDICATION
     Dosage: 10 MG, UNK
     Route: 065
  3. VYVANSE [Suspect]
     Active Substance: LISDEXAMFETAMINE DIMESYLATE
     Indication: PRODUCT USED FOR UNKNOWN INDICATION
     Dosage: 30 MG, UNK
     Route: 065

REACTIONS (3)
  - Drug ineffective [Unknown]
  - Distractibility [Unknown]
  - Disturbance in attention [Unknown]
